FAERS Safety Report 4961909-3 (Version None)
Quarter: 2006Q1

REPORT INFORMATION
  Report Type: 
  Country: None (occurrence: None)
  Receive Date: 20060329
  Receipt Date: 20060317
  Transmission Date: 20060701
  Serious: Yes (Life-Threatening, Hospitalization)
  Sender: FDA-Public Use
  Company Number: 200611180BCC

PATIENT
  Age: 69 Year
  Sex: Female

DRUGS (3)
  1. ALEVE [Suspect]
     Dosage: 440 MG, TOTAL DAILY, ORAL
     Route: 048
     Dates: start: 20060307
  2. PERCOCET [Concomitant]
  3. PORTABLE OXYGEN [Concomitant]

REACTIONS (4)
  - ADVERSE DRUG REACTION [None]
  - APNOEA [None]
  - LOSS OF CONSCIOUSNESS [None]
  - RESPIRATORY ARREST [None]
